FAERS Safety Report 9180441 (Version 1)
Quarter: 2013Q1

REPORT INFORMATION
  Report Type: Spontaneous
  Country: US (occurrence: US)
  Receive Date: 20130322
  Receipt Date: 20130322
  Transmission Date: 20140127
  Serious: No
  Sender: FDA-Public Use
  Company Number: US-BIOGENIDEC-2013BI025507

PATIENT
  Age: 61 Year
  Sex: Female

DRUGS (1)
  1. TYSABRI [Suspect]
     Indication: MULTIPLE SCLEROSIS
     Route: 042
     Dates: start: 20070409

REACTIONS (6)
  - Hallucination, visual [Unknown]
  - Mental impairment [Not Recovered/Not Resolved]
  - Dysphemia [Unknown]
  - Speech disorder [Unknown]
  - Sinusitis [Unknown]
  - Multiple sclerosis [Unknown]
